FAERS Safety Report 10463424 (Version 2)
Quarter: 2014Q3

REPORT INFORMATION
  Report Type: Spontaneous
  Country: US (occurrence: None)
  Receive Date: 20140917
  Receipt Date: 20140926
  Transmission Date: 20150326
  Serious: Yes (Hospitalization)
  Sender: FDA-Public Use
  Company Number: 2014-US-011626

PATIENT
  Sex: Male

DRUGS (1)
  1. XYREM [Suspect]
     Active Substance: SODIUM OXYBATE
     Indication: TREMOR
     Route: 048
     Dates: start: 201306, end: 201409

REACTIONS (3)
  - Hospitalisation [None]
  - Pancreatitis [None]
  - Off label use [None]
